FAERS Safety Report 10785217 (Version 3)
Quarter: 2015Q2

REPORT INFORMATION
  Report Type: Spontaneous
  Country: US (occurrence: US)
  Receive Date: 20150211
  Receipt Date: 20150610
  Transmission Date: 20150821
  Serious: Yes (Hospitalization)
  Sender: FDA-Public Use
  Company Number: US-BAYER-2015-020229

PATIENT
  Age: 46 Year
  Sex: Female
  Weight: 86 kg

DRUGS (11)
  1. MIRENA [Suspect]
     Active Substance: LEVONORGESTREL
     Indication: MENORRHAGIA
  2. VITAMIN C [Concomitant]
     Active Substance: ASCORBIC ACID
  3. ALPRAZOLAM. [Concomitant]
     Active Substance: ALPRAZOLAM
     Dosage: UNK
     Dates: start: 20120208
  4. MIRENA [Suspect]
     Active Substance: LEVONORGESTREL
     Indication: DYSMENORRHOEA
  5. GLUCOTROL [Concomitant]
     Active Substance: GLIPIZIDE
     Dosage: UNK
     Dates: start: 20120208
  6. METFORMIN [Concomitant]
     Active Substance: METFORMIN HYDROCHLORIDE
     Dosage: UNK
     Dates: start: 20120208
  7. COLACE [Concomitant]
     Active Substance: DOCUSATE SODIUM
  8. FERROUS SULFATE [Concomitant]
     Active Substance: FERROUS SULFATE\FERROUS SULFATE, DRIED
  9. MIRENA [Suspect]
     Active Substance: LEVONORGESTREL
     Indication: CONTRACEPTION
     Dosage: 20 MCG/24HR, CONT
     Route: 015
     Dates: start: 20061221, end: 20120430
  10. MIRENA [Suspect]
     Active Substance: LEVONORGESTREL
     Indication: UTERINE LEIOMYOMA
  11. IRON [Concomitant]
     Active Substance: IRON

REACTIONS (15)
  - Uterine perforation [None]
  - Abdominal pain [None]
  - Injury [None]
  - Emotional distress [None]
  - Medical device discomfort [None]
  - Device use error [None]
  - Internal injury [None]
  - Anxiety [None]
  - Depression [None]
  - Fear [None]
  - Nightmare [None]
  - Device issue [None]
  - Depressed mood [None]
  - Pelvic pain [None]
  - Genital haemorrhage [None]

NARRATIVE: CASE EVENT DATE: 20120430
